FAERS Safety Report 8773794 (Version 3)
Quarter: 2013Q1

REPORT INFORMATION
  Report Type: Report from Study
  Country: US (occurrence: US)
  Receive Date: 20120907
  Receipt Date: 20130129
  Transmission Date: 20140127
  Serious: Yes (Hospitalization, Other)
  Sender: FDA-Public Use
  Company Number: US-PURDUE-USA-2012-0092385

PATIENT
  Age: 55 Year
  Sex: Male

DRUGS (3)
  1. OXYCONTIN (NDA 22-272) [Suspect]
     Indication: PAIN
     Dosage: 60 MG, Q12H
     Route: 048
  2. OXYCONTIN (NDA 22-272) [Suspect]
     Dosage: 60 MG, TID
     Route: 048
  3. OXYCONTIN (NDA 22-272) [Suspect]
     Dosage: 60 MG, TID
     Route: 048

REACTIONS (7)
  - Myocardial infarction [Unknown]
  - Chest pain [Unknown]
  - Neck pain [Unknown]
  - Breakthrough pain [Not Recovered/Not Resolved]
  - Pain [Not Recovered/Not Resolved]
  - Nervousness [Unknown]
  - Stress [Unknown]
